FAERS Safety Report 17369903 (Version 5)
Quarter: 2020Q2

REPORT INFORMATION
  Report Type: Report from Study
  Country: US (occurrence: US)
  Receive Date: 20200205
  Receipt Date: 20200618
  Transmission Date: 20200713
  Serious: No
  Sender: FDA-Public Use
  Company Number: US-DSJP-DSU-2020-103639

PATIENT

DRUGS (3)
  1. TURALIO [Suspect]
     Active Substance: PEXIDARTINIB HYDROCHLORIDE
     Indication: NEOPLASM MALIGNANT
     Dosage: 400 MG, BID
     Route: 048
     Dates: start: 20200106
  2. PEXIDARTINIB [Suspect]
     Active Substance: PEXIDARTINIB
  3. TURALIO [Suspect]
     Active Substance: PEXIDARTINIB HYDROCHLORIDE
     Dosage: 200 MG IN AM AND 400 MG IN PM, BID
     Route: 048

REACTIONS (5)
  - Nausea [Recovered/Resolved]
  - Off label use [Unknown]
  - Aspartate aminotransferase increased [Unknown]
  - Hair colour changes [Not Recovered/Not Resolved]
  - Alanine aminotransferase increased [Unknown]
